FAERS Safety Report 13910052 (Version 1)
Quarter: 2017Q3

REPORT INFORMATION
  Report Type: Spontaneous
  Country: US (occurrence: None)
  Receive Date: 20170822
  Receipt Date: 20170822
  Transmission Date: 20171127
  Serious: Yes (Life-Threatening, Hospitalization)
  Sender: FDA-Public Use
  Company Number: None

PATIENT
  Age: 74 Year
  Sex: Female
  Weight: 61.24 kg

DRUGS (5)
  1. VITAMIN D [Concomitant]
     Active Substance: CHOLECALCIFEROL
  2. ACIDOPHOLUS [Concomitant]
  3. BARD POWER PORT [Concomitant]
  4. 5FU [Suspect]
     Active Substance: FLUOROURACIL
  5. LEVOTHYROXIN [Concomitant]
     Active Substance: LEVOTHYROXINE

REACTIONS (7)
  - Colitis [None]
  - Flatulence [None]
  - Enteritis [None]
  - Duodenitis [None]
  - Vomiting [None]
  - Diarrhoea [None]
  - Gastrointestinal inflammation [None]

NARRATIVE: CASE EVENT DATE: 20170612
